FAERS Safety Report 9510683 (Version 2)
Quarter: 2013Q4

REPORT INFORMATION
  Report Type: Spontaneous
  Country: US (occurrence: US)
  Receive Date: 20130909
  Receipt Date: 20131106
  Transmission Date: 20140711
  Serious: Yes (Death)
  Sender: FDA-Public Use
  Company Number: US-RB-057958-13

PATIENT
  Age: 53 Year
  Sex: Male
  Weight: 110 kg

DRUGS (2)
  1. SUBOXONE TABLET [Suspect]
     Indication: PRODUCT USED FOR UNKNOWN INDICATION
     Dosage: DOSING DETAILS UNKNOWN
     Route: 065
     Dates: end: 201308
  2. SUBOXONE FILM [Suspect]
     Indication: PRODUCT USED FOR UNKNOWN INDICATION
     Dosage: SUBOXONE FILM; DOSING DETAILS UNKNOWN
     Route: 065
     Dates: end: 201308

REACTIONS (7)
  - Substance abuse [Recovered/Resolved]
  - Malaise [Recovered/Resolved]
  - Toxicity to various agents [Fatal]
  - Obesity [Recovered/Resolved]
  - Cardiomegaly [Recovered/Resolved]
  - Contusion [Recovered/Resolved]
  - Excoriation [Recovered/Resolved]
